FAERS Safety Report 5752606-5 (Version None)
Quarter: 2008Q2

REPORT INFORMATION
  Report Type: 
  Country: None (occurrence: None)
  Receive Date: 20080527
  Receipt Date: 20080527
  Transmission Date: 20081010
  Serious: Yes (Other)
  Sender: FDA-Public Use
  Company Number: None

PATIENT
  Age: 52 Year
  Sex: Female
  Weight: 70.3075 kg

DRUGS (2)
  1. MIRAPEX [Suspect]
     Indication: FIBROMYALGIA
     Dosage: 3 3X DAILY
     Dates: start: 20050101, end: 20080523
  2. MIRAPEX [Suspect]
     Indication: RESTLESS LEGS SYNDROME
     Dosage: 3 3X DAILY
     Dates: start: 20050101, end: 20080523

REACTIONS (3)
  - BANKRUPTCY [None]
  - ECONOMIC PROBLEM [None]
  - GAMBLING [None]
